FAERS Safety Report 17724772 (Version 5)
Quarter: 2021Q4

REPORT INFORMATION
  Report Type: Spontaneous
  Country: GB (occurrence: GB)
  Receive Date: 20200429
  Receipt Date: 20211224
  Transmission Date: 20220303
  Serious: Yes (Hospitalization, Other)
  Sender: FDA-Public Use
  Company Number: None

PATIENT
  Age: 21 Year
  Sex: Female

DRUGS (47)
  1. AMITRIPTYLINE [Suspect]
     Active Substance: AMITRIPTYLINE
     Indication: Product used for unknown indication
     Dosage: 100 MG, QD (AT NIGHT)
     Route: 048
  2. GABAPENTIN [Suspect]
     Active Substance: GABAPENTIN
     Indication: Product used for unknown indication
     Dosage: 900 MG, QID
     Route: 048
  3. GABAPENTIN [Suspect]
     Active Substance: GABAPENTIN
     Dosage: 3600 MG, QD
     Route: 048
  4. PREGABALIN [Suspect]
     Active Substance: PREGABALIN
     Indication: Abdominal pain
     Dosage: UNK
     Route: 048
  5. PREGABALIN [Suspect]
     Active Substance: PREGABALIN
     Dosage: UNK
     Route: 065
  6. TRAMADOL [Suspect]
     Active Substance: TRAMADOL
     Indication: Abdominal pain
     Dosage: 1 DF, QD
     Route: 065
  7. TRAMADOL [Suspect]
     Active Substance: TRAMADOL
     Dosage: 150 MG, TID (3 IN 1 DAYS 50 MG, 3/DAY)
     Route: 065
     Dates: start: 200904, end: 200909
  8. TRAMADOL [Suspect]
     Active Substance: TRAMADOL
     Dosage: 400 MG, QD (100 MG, 4/DAY)
     Route: 048
     Dates: start: 200910, end: 200911
  9. TRAMADOL [Suspect]
     Active Substance: TRAMADOL
     Dosage: 450 MG, QD (150 MG, TID (50 MG, 3/DAY));
     Route: 065
     Dates: start: 200904, end: 200909
  10. TRAMADOL [Suspect]
     Active Substance: TRAMADOL
     Dosage: UNK, QD
     Route: 065
  11. TRAMADOL [Suspect]
     Active Substance: TRAMADOL
     Dosage: 50 MG, TID
     Route: 065
     Dates: start: 200909, end: 201011
  12. TRAMADOL [Suspect]
     Active Substance: TRAMADOL
     Dosage: 450 MG, TID (50 MG 3/DAY)
     Route: 048
     Dates: start: 200904, end: 200909
  13. TRAMADOL [Suspect]
     Active Substance: TRAMADOL
     Dosage: 100 MG, QID
     Route: 065
     Dates: start: 200910, end: 200911
  14. TRAMADOL [Suspect]
     Active Substance: TRAMADOL
     Dosage: 400 MG, QD
     Route: 048
     Dates: start: 200904, end: 200909
  15. TRAMADOL [Suspect]
     Active Substance: TRAMADOL
     Dosage: UNK
     Route: 065
  16. METOCLOPRAMIDE [Suspect]
     Active Substance: METOCLOPRAMIDE
     Indication: Abdominal pain
     Dosage: 10 MG (IN 8 HOURS 10 MG, 3/DAY)
     Route: 065
  17. METOCLOPRAMIDE [Suspect]
     Active Substance: METOCLOPRAMIDE
     Dosage: 50 MG, QD
     Route: 065
  18. METOCLOPRAMIDE [Suspect]
     Active Substance: METOCLOPRAMIDE
     Dosage: 10 MG, TID IN 8 HOURS
     Route: 065
  19. DOMPERIDONE [Suspect]
     Active Substance: DOMPERIDONE
     Indication: Product used for unknown indication
     Dosage: 10 MG, TID  (UP TO THREE TIMES A DAY)
     Route: 048
  20. DOMPERIDONE [Suspect]
     Active Substance: DOMPERIDONE
     Dosage: 30 MG, QD
     Route: 048
  21. BETAHISTINE [Suspect]
     Active Substance: BETAHISTINE
     Indication: Product used for unknown indication
     Dosage: 24 MG, QD
     Route: 048
  22. PRUCALOPRIDE [Suspect]
     Active Substance: PRUCALOPRIDE
     Indication: Product used for unknown indication
     Dosage: 2 MG, QD
     Route: 048
  23. COCODAMOL [Suspect]
     Active Substance: ACETAMINOPHEN\CODEINE PHOSPHATE
     Indication: Product used for unknown indication
     Dosage: 8 DF, QD (30/500MG)
     Route: 048
  24. COCODAMOL [Suspect]
     Active Substance: ACETAMINOPHEN\CODEINE PHOSPHATE
     Dosage: 32 DOSAGE FORM, QID
     Route: 048
  25. COCODAMOL [Suspect]
     Active Substance: ACETAMINOPHEN\CODEINE PHOSPHATE
     Dosage: 8 DOSAGE FORM, QID
     Route: 065
  26. CYCLIZINE [Suspect]
     Active Substance: CYCLIZINE
     Indication: Nausea
     Dosage: 150 MG, QD (50 MG, 3/DAY)
     Route: 048
  27. CYCLIZINE [Suspect]
     Active Substance: CYCLIZINE
     Indication: Vomiting
     Dosage: 50 MG, QD
     Route: 065
  28. CYCLIZINE [Suspect]
     Active Substance: CYCLIZINE
     Dosage: 8 DOSAGE FORM, QD
     Route: 065
  29. CYCLIZINE [Suspect]
     Active Substance: CYCLIZINE
     Dosage: 100 MG, TID
     Route: 065
  30. CYCLIZINE [Suspect]
     Active Substance: CYCLIZINE
     Dosage: 50 MG, TID (50 MG, 3/DAY, 8 DOSAGE FORM, 1X/DAY:QD);
     Route: 048
  31. CYCLIZINE [Suspect]
     Active Substance: CYCLIZINE
     Dosage: UNK
     Route: 065
  32. AMITRIPTYLINE [Suspect]
     Active Substance: AMITRIPTYLINE
     Indication: Product used for unknown indication
     Dosage: 100 MG, QD
     Route: 048
  33. AMITRIPTYLINE [Suspect]
     Active Substance: AMITRIPTYLINE
     Dosage: 100 MG, QD (AT NIGHT)
     Route: 048
  34. ACETAMINOPHEN\CODEINE PHOSPHATE [Suspect]
     Active Substance: ACETAMINOPHEN\CODEINE PHOSPHATE
     Indication: Product used for unknown indication
     Dosage: 32 DOSAGE FORM, QID
     Route: 048
  35. ACETAMINOPHEN\CODEINE PHOSPHATE [Suspect]
     Active Substance: ACETAMINOPHEN\CODEINE PHOSPHATE
     Dosage: 8 DOSAGE FORM, QD- (30MG/500MG)
     Route: 048
  36. PRUCALOPRIDE SUCCINATE [Suspect]
     Active Substance: PRUCALOPRIDE SUCCINATE
     Indication: Product used for unknown indication
     Dosage: 2 MG, QD
     Route: 065
  37. LANSOPRAZOLE [Concomitant]
     Active Substance: LANSOPRAZOLE
     Indication: Product used for unknown indication
     Dosage: 60 MG, QD (30 MG BID)
     Route: 048
  38. LANSOPRAZOLE [Concomitant]
     Active Substance: LANSOPRAZOLE
     Dosage: 30 MG, BID
     Route: 048
  39. HYDROCORTISONE [Concomitant]
     Active Substance: HYDROCORTISONE
     Indication: Product used for unknown indication
     Dosage: UNK
     Route: 048
  40. HYDROCORTISONE [Concomitant]
     Active Substance: HYDROCORTISONE
     Dosage: 450 MG, QD (150 MG, TID)
     Route: 048
     Dates: start: 200904, end: 200909
  41. HYDROCORTISONE [Concomitant]
     Active Substance: HYDROCORTISONE
     Dosage: 1600 MG, QD (400 MG, QID)
     Route: 048
     Dates: start: 200910, end: 200911
  42. HYDROCORTISONE [Concomitant]
     Active Substance: HYDROCORTISONE
     Dosage: 400 MG, QID
     Route: 048
     Dates: start: 200910, end: 200911
  43. HYDROCORTISONE [Concomitant]
     Active Substance: HYDROCORTISONE
     Dosage: 150 MG, TID
     Route: 048
  44. OMEPRAZOLE [Concomitant]
     Active Substance: OMEPRAZOLE
     Indication: Dyspepsia
     Dosage: 40 MG, QD
     Route: 065
  45. SUMATRIPTAN [Concomitant]
     Active Substance: SUMATRIPTAN
     Indication: Migraine
     Dosage: 50 MG, QD
     Route: 065
  46. SUMATRIPTAN [Concomitant]
     Active Substance: SUMATRIPTAN
     Dosage: 50 MG
     Route: 065
  47. SUMATRIPTAN [Concomitant]
     Active Substance: SUMATRIPTAN
     Dosage: 50 MG
     Route: 065

REACTIONS (10)
  - Pituitary tumour benign [Recovering/Resolving]
  - Hyperprolactinaemia [Recovered/Resolved]
  - Adrenal insufficiency [Recovered/Resolved]
  - Secondary adrenocortical insufficiency [Recovered/Resolved]
  - Lethargy [Recovered/Resolved]
  - Vision blurred [Unknown]
  - Abdominal pain [Recovered/Resolved]
  - Dizziness [Recovered/Resolved]
  - Headache [Recovered/Resolved]
  - Vomiting [Recovered/Resolved]

NARRATIVE: CASE EVENT DATE: 20091101
